FAERS Safety Report 9303924 (Version 6)
Quarter: 2015Q1

REPORT INFORMATION
  Report Type: Spontaneous
  Country: US (occurrence: US)
  Receive Date: 20130522
  Receipt Date: 20150202
  Transmission Date: 20150721
  Serious: No
  Sender: FDA-Public Use
  Company Number: US-009507513-1305USA012253

PATIENT
  Sex: Male
  Weight: 86.62 kg

DRUGS (4)
  1. SOMA [Concomitant]
     Active Substance: CARISOPRODOL
     Indication: PRODUCT USED FOR UNKNOWN INDICATION
     Dosage: UNK
     Dates: start: 2003
  2. NORCO [Concomitant]
     Active Substance: ACETAMINOPHEN\HYDROCODONE BITARTRATE
     Indication: PAIN
     Dosage: 10 MG/325MG 1 QID PRN
     Route: 048
     Dates: start: 2003
  3. PROPECIA [Suspect]
     Active Substance: FINASTERIDE
     Indication: ALOPECIA
     Dosage: 1 MG, UNK
     Route: 048
     Dates: start: 200604, end: 201101
  4. OXYCODONE [Concomitant]
     Active Substance: OXYCODONE
     Indication: DYSTONIA
     Dosage: UNK
     Dates: start: 2003

REACTIONS (22)
  - Penile size reduced [Not Recovered/Not Resolved]
  - Epididymal cyst [Not Recovered/Not Resolved]
  - Blood testosterone decreased [Not Recovered/Not Resolved]
  - Hypercholesterolaemia [Unknown]
  - Orchitis [Unknown]
  - Abdominal pain [Unknown]
  - Fatigue [Not Recovered/Not Resolved]
  - Sexual dysfunction [Not Recovered/Not Resolved]
  - Depression [Not Recovered/Not Resolved]
  - Back pain [Recovering/Resolving]
  - Hyperglycaemia [Unknown]
  - Epididymitis [Unknown]
  - Penis injury [Not Recovered/Not Resolved]
  - Spinal anaesthesia [Unknown]
  - Erectile dysfunction [Not Recovered/Not Resolved]
  - Abnormal loss of weight [Recovering/Resolving]
  - Dystrophic calcification [Unknown]
  - Torticollis [Unknown]
  - Vision blurred [Unknown]
  - Libido decreased [Unknown]
  - Hypogonadism [Unknown]
  - Brain injury [Not Recovered/Not Resolved]

NARRATIVE: CASE EVENT DATE: 2006
